FAERS Safety Report 8776987 (Version 1)
Quarter: 2012Q4

REPORT INFORMATION
  Report Type: 
  Country: US (occurrence: US)
  Receive Date: 20120911
  Receipt Date: 20120911
  Transmission Date: 20130627
  Serious: Yes (Hospitalization)
  Sender: FDA-Public Use
  Company Number: US-GLAXOSMITHKLINE-B0828621A

PATIENT
  Age: 60 Year
  Sex: Female

DRUGS (2)
  1. LETAIRIS [Suspect]
     Indication: PULMONARY HYPERTENSION
     Dates: start: 20081007
  2. EPOPROSTENOL SODIUM [Suspect]

REACTIONS (3)
  - Inflammation [Unknown]
  - Unevaluable event [Unknown]
  - Central venous catheterisation [Unknown]
